FAERS Safety Report 8185243 (Version 3)
Quarter: 2013Q4

REPORT INFORMATION
  Report Type: Spontaneous
  Country: US (occurrence: US)
  Receive Date: 20111018
  Receipt Date: 20131204
  Transmission Date: 20140711
  Serious: Yes (Other)
  Sender: FDA-Public Use
  Company Number: US-ASTRAZENECA-2011SE35759

PATIENT
  Age: 58 Year
  Sex: Female
  Weight: 45.4 kg

DRUGS (5)
  1. SYMBICORT PMDI [Suspect]
     Indication: EMPHYSEMA
     Dosage: 2 PUFFS BID
     Route: 055
     Dates: start: 2006
  2. SYMBICORT PMDI [Suspect]
     Indication: EMPHYSEMA
     Dosage: 160/4.5, ONE PUFF TWICE DAILY
     Route: 055
     Dates: start: 2007
  3. SYMBICORT PMDI [Suspect]
     Indication: EMPHYSEMA
     Dosage: 160/4.5, TWO PUFFS TWICE DAILY
     Route: 055
  4. COUMADIN [Concomitant]
     Indication: ANTICOAGULANT THERAPY
     Dates: start: 20131122
  5. HYDROCODONE [Concomitant]
     Indication: PAIN
     Dosage: 5-325 MG, EVERY FOUR HOURS
     Dates: start: 20131122

REACTIONS (7)
  - Femoral neck fracture [Recovered/Resolved]
  - Dyspnoea [Unknown]
  - Emphysema [Unknown]
  - Malaise [Unknown]
  - Osteoporosis [Not Recovered/Not Resolved]
  - Drug dose omission [Unknown]
  - Intentional drug misuse [Unknown]
